FAERS Safety Report 8789052 (Version 1)
Quarter: 2012Q4

REPORT INFORMATION
  Report Type: 
  Country: US (occurrence: US)
  Receive Date: 20120917
  Receipt Date: 20120917
  Transmission Date: 20130627
  Serious: No
  Sender: FDA-Public Use
  Company Number: US-009507513-1209USA005687

PATIENT

DRUGS (2)
  1. JANUMET [Suspect]
     Route: 048
  2. METFORMIN [Concomitant]

REACTIONS (1)
  - Vomiting [Recovered/Resolved]
